FAERS Safety Report 25898698 (Version 1)
Quarter: 2025Q4

REPORT INFORMATION
  Report Type: Spontaneous
  Country: US (occurrence: US)
  Receive Date: 20251009
  Receipt Date: 20251009
  Transmission Date: 20260118
  Serious: No
  Sender: ROCHE
  Company Number: US-ROCHE-10000405676

PATIENT

DRUGS (3)
  1. AVASTIN [Suspect]
     Active Substance: BEVACIZUMAB
     Indication: Product used for unknown indication
     Route: 065
  2. EYLEA [Concomitant]
     Active Substance: AFLIBERCEPT
  3. VABYSMO [Concomitant]
     Active Substance: FARICIMAB-SVOA

REACTIONS (2)
  - Drug ineffective [Unknown]
  - No adverse event [Unknown]
